FAERS Safety Report 6368416-4 (Version None)
Quarter: 2009Q3

REPORT INFORMATION
  Report Type: 
  Country: None (occurrence: None)
  Receive Date: 20090922
  Receipt Date: 20090911
  Transmission Date: 20100115
  Serious: Yes (Other)
  Sender: FDA-Public Use
  Company Number: JP-WYE-H11075209

PATIENT
  Sex: Male

DRUGS (7)
  1. ANCARON [Suspect]
     Indication: ATRIAL FIBRILLATION
     Route: 048
     Dates: start: 20080210, end: 20080604
  2. ASPIRIN [Concomitant]
     Route: 048
     Dates: start: 20080208
  3. ITOROL [Concomitant]
     Route: 048
     Dates: start: 20080208
  4. AMIODARONE HYDROCHLORIDE [Suspect]
     Indication: ATRIAL FIBRILLATION
     Dosage: INITIAL RAPID INFUSION: RATE 10ML/MIN AT CONCENTRATION OF 1.25 MG/ML
     Route: 042
     Dates: start: 20080205, end: 20080205
  5. AMIODARONE HYDROCHLORIDE [Suspect]
     Dosage: LOADING INFUSION: INFUSION RATE 33ML/HR AT CONCENTRATION 1.50 MG/ML
     Route: 042
     Dates: start: 20080205, end: 20080205
  6. AMIODARONE HYDROCHLORIDE [Suspect]
     Dosage: MAINTENANCE INFUSION: INFUSION RATE 17ML/HR AT CONCENTRATION 1.50MG/ML
     Route: 042
     Dates: start: 20080205, end: 20080208
  7. AMIODARONE HYDROCHLORIDE [Suspect]
     Dosage: CONTINUED TREATMENT: INFUSION 6ML/HR AT CONCENTRATION 1.50 MG/ML
     Route: 042
     Dates: start: 20080208, end: 20080210

REACTIONS (1)
  - PNEUMONIA ASPIRATION [None]
